FAERS Safety Report 4883750-2 (Version None)
Quarter: 2006Q1

REPORT INFORMATION
  Report Type: 
  Country: None (occurrence: None)
  Receive Date: 20060118
  Receipt Date: 20060111
  Transmission Date: 20060701
  Serious: Yes (Hospitalization)
  Sender: FDA-Public Use
  Company Number: RU-ROCHE-431551

PATIENT
  Age: 26 Year
  Sex: Male

DRUGS (2)
  1. PEG-INTERFERON ALFA 2A (RO 25-8310) [Suspect]
     Route: 058
     Dates: start: 20050103, end: 20051203
  2. RIBAVIRIN [Suspect]
     Route: 048
     Dates: start: 20050103, end: 20051206

REACTIONS (1)
  - RENAL ABSCESS [None]
